FAERS Safety Report 20141621 (Version 7)
Quarter: 2022Q4

REPORT INFORMATION
  Report Type: Spontaneous
  Country: NL (occurrence: NL)
  Receive Date: 20211202
  Receipt Date: 20221220
  Transmission Date: 20230113
  Serious: Yes (Hospitalization, Other)
  Sender: FDA-Public Use
  Company Number: NL-PFIZER INC-202101352800

PATIENT
  Age: 83 Year
  Sex: Female

DRUGS (2)
  1. PREGABALIN [Suspect]
     Active Substance: PREGABALIN
     Indication: Product used for unknown indication
     Dosage: 10500 MG (DOSE (MGKG-1)/210.0)
     Route: 048
  2. PREGABALIN [Suspect]
     Active Substance: PREGABALIN
     Dosage: 210 MG/KG/210 MILLIGRAM/KILOGRAM
     Route: 065

REACTIONS (8)
  - Confusional state [Unknown]
  - Headache [Unknown]
  - Loss of consciousness [Unknown]
  - Somnolence [Unknown]
  - Toxicity to various agents [Unknown]
  - Accidental overdose [Unknown]
  - Prescribed overdose [Unknown]
  - Intentional overdose [Unknown]
